FAERS Safety Report 8738318 (Version 2)
Quarter: 2012Q4

REPORT INFORMATION
  Report Type: 
  Country: US (occurrence: US)
  Receive Date: 20120823
  Receipt Date: 20120920
  Transmission Date: 20130627
  Serious: Yes (Hospitalization)
  Sender: FDA-Public Use
  Company Number: US-BAYER-2012-085077

PATIENT
  Age: 39 Year
  Sex: Female

DRUGS (1)
  1. BEYAZ [Suspect]
     Indication: CONTRACEPTION
     Dosage: UNK
     Dates: start: 201205

REACTIONS (1)
  - Cholelithiasis [Recovered/Resolved]
